FAERS Safety Report 5124863-X (Version None)
Quarter: 2006Q4

REPORT INFORMATION
  Report Type: 
  Country: None (occurrence: None)
  Receive Date: 20061011
  Receipt Date: 20060504
  Transmission Date: 20070319
  Serious: Yes (Other)
  Sender: FDA-Public Use
  Company Number: US-AVENTIS-200614109US

PATIENT
  Sex: Male
  Weight: 89.9 kg

DRUGS (5)
  1. KETEK [Suspect]
     Indication: SINUSITIS
     Route: 048
     Dates: start: 20060310, end: 20060314
  2. HUMALOG [Concomitant]
     Dosage: DOSE: UNK
  3. LANTUS [Concomitant]
     Dosage: DOSE: UNK
  4. LISINOPRIL HCT [Concomitant]
     Dosage: DOSE: UNK
  5. IBUPROFEN [Concomitant]
     Dosage: DOSE: UNKNOWN

REACTIONS (9)
  - ALANINE AMINOTRANSFERASE INCREASED [None]
  - ASPARTATE AMINOTRANSFERASE INCREASED [None]
  - BILIRUBIN CONJUGATED INCREASED [None]
  - BLOOD ALKALINE PHOSPHATASE INCREASED [None]
  - BLOOD BILIRUBIN INCREASED [None]
  - BLOOD BILIRUBIN UNCONJUGATED INCREASED [None]
  - BLOOD CHLORIDE DECREASED [None]
  - HEPATITIS [None]
  - SINUSITIS [None]
